FAERS Safety Report 5152427-0 (Version None)
Quarter: 2006Q4

REPORT INFORMATION
  Report Type: 
  Country: None (occurrence: None)
  Receive Date: 20061116
  Receipt Date: 20060307
  Transmission Date: 20070319
  Serious: Yes (Hospitalization)
  Sender: FDA-Public Use
  Company Number: US-ELI_LILLY_AND_COMPANY-US200605006218

PATIENT
  Age: 57 Year
  Sex: Male
  Weight: 105.22 kg

DRUGS (4)
  1. ZYPREXA [Suspect]
     Dosage: 5 MG, UNK
     Dates: start: 20010101
  2. ZYPREXA [Suspect]
     Dosage: 10 MG, UNK
     Dates: start: 20010101
  3. QUETIAPINE FUMARATE [Concomitant]
     Dates: start: 20010101
  4. RISPERIDONE [Concomitant]
     Dosage: UNK, UNK
     Dates: start: 20010101

REACTIONS (4)
  - CARDIAC DISORDER [None]
  - DIABETES MELLITUS [None]
  - LACTIC ACIDOSIS [None]
  - METABOLIC SYNDROME [None]
